FAERS Safety Report 4428143-7 (Version None)
Quarter: 2004Q3

REPORT INFORMATION
  Report Type: 
  Country: None (occurrence: None)
  Receive Date: 20040726
  Receipt Date: 20040414
  Transmission Date: 20050211
  Serious: No
  Sender: FDA-Public Use
  Company Number: USA030537092

PATIENT
  Age: 65 Year
  Sex: Female
  Weight: 66 kg

DRUGS (8)
  1. FORTEO [Suspect]
     Indication: OSTEOPOROSIS
     Dosage: 20 UG/1 DAY
     Dates: start: 20030513, end: 20030818
  2. ADVAIR DISKUS 100/50 [Concomitant]
  3. CLARITIN [Concomitant]
  4. PREMPRO [Concomitant]
  5. CALCIUM [Concomitant]
  6. OSCAL (CALCIUM CARBONATE) [Concomitant]
  7. ALLEGRA [Concomitant]
  8. FORADIL [Concomitant]

REACTIONS (15)
  - ARTHRALGIA [None]
  - ASTHENIA [None]
  - BONE PAIN [None]
  - DIARRHOEA [None]
  - ERYTHEMA [None]
  - INSOMNIA [None]
  - NAUSEA [None]
  - PAIN [None]
  - PHOTOSENSITIVITY REACTION [None]
  - RASH [None]
  - RETCHING [None]
  - TREMOR [None]
  - VISUAL DISTURBANCE [None]
  - VOMITING [None]
  - WEIGHT INCREASED [None]
